FAERS Safety Report 7054132-2 (Version None)
Quarter: 2010Q4

REPORT INFORMATION
  Report Type: 
  Country: None (occurrence: None)
  Receive Date: 20101020
  Receipt Date: 20101013
  Transmission Date: 20110411
  Serious: Yes (Other)
  Sender: FDA-Public Use
  Company Number: FR-BAXTER-2010BH025870

PATIENT
  Age: 54 Year
  Sex: Female

DRUGS (4)
  1. CYCLOPHOSPHAMIDE [Suspect]
     Indication: OVARIAN CANCER
     Route: 065
     Dates: start: 19890101, end: 19890101
  2. CARBOPLATIN [Suspect]
     Indication: OVARIAN CANCER
     Route: 065
     Dates: start: 19890101, end: 19890101
  3. DOXORUBICIN HCL [Suspect]
     Indication: OVARIAN CANCER
     Route: 065
     Dates: start: 19890101, end: 19890101
  4. RADIOTHERAPY [Suspect]
     Indication: OVARIAN CANCER
     Route: 065
     Dates: start: 19890101, end: 19890101

REACTIONS (1)
  - HEPATIC CIRRHOSIS [None]
